FAERS Safety Report 7379635-2 (Version None)
Quarter: 2011Q1

REPORT INFORMATION
  Report Type: 
  Country: None (occurrence: None)
  Receive Date: 20110324
  Receipt Date: 20110324
  Transmission Date: 20110831
  Serious: Yes (Hospitalization)
  Sender: FDA-Public Use
  Company Number: None

PATIENT
  Age: 86 Year
  Sex: Female

DRUGS (12)
  1. AMIODARONE [Concomitant]
  2. HEPARIN [Concomitant]
  3. AMLODIPINE [Concomitant]
  4. BUMETANIDE [Concomitant]
  5. RENAGEL [Concomitant]
  6. CALCITONIN NASAL [Concomitant]
  7. CITALOPRAM [Concomitant]
  8. ERYTHROPOEITIN [Concomitant]
  9. OMEGA FISH OIL [Concomitant]
  10. ZOLPIDEM [Suspect]
     Indication: INSOMNIA
     Dosage: 10MG ONCE TIME PO
     Route: 048
     Dates: start: 20110118, end: 20110118
  11. ASPIRIN [Concomitant]
  12. HYDROCORTISONE [Concomitant]

REACTIONS (7)
  - DEEP VEIN THROMBOSIS [None]
  - FALL [None]
  - CHEST PAIN [None]
  - HALLUCINATION [None]
  - SUBARACHNOID HAEMORRHAGE [None]
  - PELVIC FRACTURE [None]
  - CONFUSIONAL STATE [None]
